FAERS Safety Report 9845966 (Version 1)
Quarter: 2013Q4

REPORT INFORMATION
  Report Type: Spontaneous
  Country: US (occurrence: None)
  Receive Date: 20131219
  Receipt Date: 20131219
  Transmission Date: 20140711
  Serious: Yes (Disabling, Other)
  Sender: FDA-Public Use
  Company Number: 163-20785-13042797

PATIENT
  Age: 70 Year
  Sex: Female
  Weight: 83.5 kg

DRUGS (3)
  1. THALOMID (THALIDOMIDE) (100 MILLIGRAM, CAPSULES) [Suspect]
     Indication: PLASMA CELL MYELOMA
     Route: 048
     Dates: start: 201211, end: 20130410
  2. BORTEZOMIB [Concomitant]
  3. DEXAMETHASONE [Concomitant]

REACTIONS (2)
  - Plasma cell myeloma [None]
  - Pancytopenia [None]
